FAERS Safety Report 21309765 (Version 1)
Quarter: 2022Q3

REPORT INFORMATION
  Report Type: Report from Study
  Country: CO (occurrence: CO)
  Receive Date: 20220908
  Receipt Date: 20220908
  Transmission Date: 20221026
  Serious: Yes (Death, Hospitalization)
  Sender: FDA-Public Use
  Company Number: CO-ABBVIE-22K-036-4510352-00

PATIENT
  Age: 63 Year
  Sex: Female
  Weight: 55 kg

DRUGS (2)
  1. ZEMPLAR [Suspect]
     Active Substance: PARICALCITOL
     Indication: Hyperparathyroidism secondary
     Route: 042
     Dates: start: 20200317, end: 20220809
  2. ZEMPLAR [Suspect]
     Active Substance: PARICALCITOL
     Indication: Chronic kidney disease

REACTIONS (3)
  - Cardio-respiratory arrest [Fatal]
  - Vomiting [Not Recovered/Not Resolved]
  - Diarrhoea [Not Recovered/Not Resolved]

NARRATIVE: CASE EVENT DATE: 20220815
